APPROVED DRUG PRODUCT: DICLOFENAC SODIUM
Active Ingredient: DICLOFENAC SODIUM
Strength: 50MG
Dosage Form/Route: TABLET, DELAYED RELEASE;ORAL
Application: A075281 | Product #002 | TE Code: AB
Applicant: AUROBINDO PHARMA USA INC
Approved: Feb 12, 2002 | RLD: No | RS: No | Type: RX